FAERS Safety Report 4263716-6 (Version None)
Quarter: 2004Q1

REPORT INFORMATION
  Report Type: 
  Country: None (occurrence: None)
  Receive Date: 20040102
  Receipt Date: 20031217
  Transmission Date: 20041129
  Serious: Yes (Hospitalization)
  Sender: FDA-Public Use
  Company Number: US_031198664

PATIENT
  Age: 75 Year
  Sex: Female

DRUGS (1)
  1. ZYPREXA [Suspect]
     Indication: VASCULAR DEMENTIA
     Dosage: 15 MG/DAY

REACTIONS (3)
  - AGITATION [None]
  - CONDITION AGGRAVATED [None]
  - MYOCARDIAL INFARCTION [None]
